FAERS Safety Report 4500965-3 (Version None)
Quarter: 2004Q4

REPORT INFORMATION
  Report Type: 
  Country: None (occurrence: None)
  Receive Date: 20041115
  Receipt Date: 20041104
  Transmission Date: 20050328
  Serious: Yes (Hospitalization)
  Sender: FDA-Public Use
  Company Number: US-ROCHE-385439

PATIENT

DRUGS (3)
  1. MYCOPHENOLATE MOFETIL [Suspect]
     Route: 065
  2. THYMOGLOBULIN [Suspect]
     Route: 065
  3. PREDNISONE [Suspect]
     Route: 065

REACTIONS (4)
  - GENERALISED OEDEMA [None]
  - LUNG DISORDER [None]
  - LUNG INFECTION [None]
  - URINARY TRACT INFECTION [None]
